FAERS Safety Report 9789497 (Version 2)
Quarter: 2014Q1

REPORT INFORMATION
  Report Type: Spontaneous
  Country: JP (occurrence: JP)
  Receive Date: 20131231
  Receipt Date: 20140211
  Transmission Date: 20141002
  Serious: Yes (Death)
  Sender: FDA-Public Use
  Company Number: JP-ROCHE-1327430

PATIENT
  Age: 82 Year
  Sex: Male

DRUGS (10)
  1. RITUXIMAB [Suspect]
     Indication: NON-HODGKIN^S LYMPHOMA
     Route: 042
     Dates: start: 20121022, end: 20121022
  2. WARFARIN POTASSIUM [Concomitant]
     Indication: CEREBRAL INFARCTION
     Route: 048
     Dates: start: 20121015
  3. GASTER D [Concomitant]
     Indication: CEREBRAL INFARCTION
     Route: 048
     Dates: start: 20121003
  4. LIPITOR [Concomitant]
     Indication: CEREBRAL INFARCTION
     Route: 048
     Dates: start: 20121003
  5. BAYASPIRIN [Concomitant]
     Indication: CEREBRAL INFARCTION
     Route: 048
     Dates: start: 20121006
  6. VASOLAN [Concomitant]
     Indication: PRODUCT USED FOR UNKNOWN INDICATION
     Route: 048
     Dates: start: 20121011, end: 20121011
  7. CALONAL [Concomitant]
     Indication: PROPHYLAXIS
     Route: 065
     Dates: start: 20121022, end: 20121022
  8. POLARAMINE [Concomitant]
     Indication: PROPHYLAXIS
     Route: 065
     Dates: start: 20121022, end: 20121022
  9. RADICUT [Concomitant]
     Indication: PRODUCT USED FOR UNKNOWN INDICATION
     Route: 042
     Dates: start: 20121003, end: 20121010
  10. SLONNON [Concomitant]
     Indication: PRODUCT USED FOR UNKNOWN INDICATION
     Route: 042
     Dates: start: 20121003, end: 20121010

REACTIONS (1)
  - Cerebral haemorrhage [Fatal]
